FAERS Safety Report 4702101-7 (Version None)
Quarter: 2005Q2

REPORT INFORMATION
  Report Type: 
  Country: None (occurrence: None)
  Receive Date: 20050624
  Receipt Date: 20050309
  Transmission Date: 20051028
  Serious: No
  Sender: FDA-Public Use
  Company Number: 2005BI006118

PATIENT
  Age: 55 Year
  Sex: Male

DRUGS (3)
  1. NATALIZUMAB [Suspect]
     Indication: RELAPSING-REMITTING MULTIPLE SCLEROSIS
     Dosage: 300 MG; QM; IV
     Route: 042
     Dates: start: 20050215, end: 20050215
  2. MS CONTIN [Concomitant]
  3. DEXEDRINE [Concomitant]

REACTIONS (1)
  - OEDEMA PERIPHERAL [None]
